FAERS Safety Report 4385309-2 (Version None)
Quarter: 2004Q2

REPORT INFORMATION
  Report Type: 
  Country: None (occurrence: None)
  Receive Date: 20040622
  Receipt Date: 20040609
  Transmission Date: 20050107
  Serious: Yes (Other)
  Sender: FDA-Public Use
  Company Number: US-JNJFOC-20040602973

PATIENT
  Age: 39 Year
  Sex: Female
  Weight: 65.7716 kg

DRUGS (9)
  1. REMICADE [Suspect]
     Indication: CROHN'S DISEASE
     Dosage: 355 MG, INTRAVENOUS
     Route: 042
     Dates: start: 20001214, end: 20040424
  2. PENTASA [Concomitant]
  3. CIMETIDINE [Concomitant]
  4. ALLEGRA [Concomitant]
  5. VIOXX [Concomitant]
  6. HYDROXIZINE (HYDROXYZINE) [Concomitant]
  7. ZYRTEC [Concomitant]
  8. BENADRYL [Concomitant]
  9. PREDNISONE TAB [Concomitant]

REACTIONS (8)
  - HYPOAESTHESIA [None]
  - INFUSION RELATED REACTION [None]
  - PAIN IN EXTREMITY [None]
  - PARAESTHESIA [None]
  - PHOTOSENSITIVITY REACTION [None]
  - PRURITUS [None]
  - RED MAN SYNDROME [None]
  - SYSTEMIC LUPUS ERYTHEMATOSUS [None]
